FAERS Safety Report 6040676-9 (Version None)
Quarter: 2009Q1

REPORT INFORMATION
  Report Type: 
  Country: None (occurrence: None)
  Receive Date: 20090116
  Receipt Date: 20080502
  Transmission Date: 20090719
  Serious: Yes (Hospitalization)
  Sender: FDA-Public Use
  Company Number: US-BRISTOL-MYERS SQUIBB COMPANY-14174338

PATIENT
  Age: 15 Year
  Sex: Male

DRUGS (2)
  1. ABILIFY [Suspect]
  2. SEROQUEL [Concomitant]

REACTIONS (2)
  - HYPERTENSION [None]
  - MUSCLE RIGIDITY [None]
